FAERS Safety Report 9869739 (Version 1)
Quarter: 2014Q1

REPORT INFORMATION
  Report Type: Spontaneous
  Country: US (occurrence: None)
  Receive Date: 20140203
  Receipt Date: 20140203
  Transmission Date: 20141002
  Serious: Yes (Hospitalization)
  Sender: FDA-Public Use
  Company Number: None

PATIENT
  Age: 85 Year
  Sex: Male
  Weight: 79.8 kg

DRUGS (1)
  1. ZOLEDRONIC [Suspect]
     Indication: BONE CANCER
     Route: 042
     Dates: start: 20140115, end: 20140115

REACTIONS (3)
  - Blood urea increased [None]
  - Blood creatinine increased [None]
  - Hypocalcaemia [None]
